FAERS Safety Report 23799064 (Version 1)
Quarter: 2024Q2

REPORT INFORMATION
  Report Type: Other
  Country: US (occurrence: None)
  Receive Date: 20240430
  Receipt Date: 20240430
  Transmission Date: 20240716
  Serious: Yes (Hospitalization)
  Sender: FDA-Public Use
  Company Number: US-ROCHE-3095419

PATIENT
  Age: 51 Year
  Sex: Female
  Weight: 138.47 kg

DRUGS (3)
  1. RITUXAN [Suspect]
     Active Substance: RITUXIMAB
     Indication: Anti-neutrophil cytoplasmic antibody positive vasculitis
     Dosage: LAST TREATMENT 06/MAR/2022 (DATE OF TREATMENT: 20/FEB/2022, 27/FEB/2022 AND 06/MAR/2022)
     Route: 042
     Dates: start: 20220205
  2. RITUXAN [Suspect]
     Active Substance: RITUXIMAB
     Indication: Arteritis
     Dosage: REPEAT 1000 MG EVERY 6 MONTHS THEREAFTER
     Route: 042
  3. ALLEGRA [Concomitant]
     Active Substance: FEXOFENADINE HYDROCHLORIDE
     Indication: Seasonal allergy
     Dosage: STARTED BEFORE RITUXAN
     Route: 048

REACTIONS (4)
  - Seasonal allergy [Not Recovered/Not Resolved]
  - Cholelithiasis [Unknown]
  - Off label use [Unknown]
  - Off label use [Unknown]

NARRATIVE: CASE EVENT DATE: 20220205
